FAERS Safety Report 13126588 (Version 2)
Quarter: 2018Q1

REPORT INFORMATION
  Report Type: Spontaneous
  Country: US (occurrence: US)
  Receive Date: 20170118
  Receipt Date: 20180122
  Transmission Date: 20180508
  Serious: No
  Sender: FDA-Public Use
  Company Number: US-ROCHE-1706861

PATIENT
  Age: 60 Year
  Sex: Female

DRUGS (16)
  1. BACTRIM [Suspect]
     Active Substance: SULFAMETHOXAZOLE\TRIMETHOPRIM
     Indication: PRODUCT USED FOR UNKNOWN INDICATION
     Route: 065
  2. VFEND [Concomitant]
     Active Substance: VORICONAZOLE
     Route: 048
  3. VALCYTE [Concomitant]
     Active Substance: VALGANCICLOVIR HYDROCHLORIDE
     Dosage: FOR 3 DAYS
     Route: 048
  4. RITUXAN [Suspect]
     Active Substance: RITUXIMAB
     Indication: PRODUCT USED FOR UNKNOWN INDICATION
     Route: 065
  5. ESCITALOPRAM OXALATE. [Concomitant]
     Active Substance: ESCITALOPRAM OXALATE
     Route: 048
  6. K-DUR [Concomitant]
     Active Substance: POTASSIUM CHLORIDE
     Route: 048
  7. HEPARIN FLUSH SOLUTION [Concomitant]
     Route: 050
  8. HALCION [Concomitant]
     Active Substance: TRIAZOLAM
     Route: 048
  9. VALCYTE [Concomitant]
     Active Substance: VALGANCICLOVIR HYDROCHLORIDE
     Route: 048
  10. PROTONIX [Concomitant]
     Active Substance: PANTOPRAZOLE SODIUM
     Route: 048
  11. PREGABALIN. [Concomitant]
     Active Substance: PREGABALIN
  12. LYRICA [Concomitant]
     Active Substance: PREGABALIN
     Route: 048
  13. RAPAMUNE [Concomitant]
     Active Substance: SIROLIMUS
     Dosage: 1 MG/ML
     Route: 048
  14. ATIVAN [Concomitant]
     Active Substance: LORAZEPAM
     Indication: ANXIETY
     Route: 048
  15. ACTIGALL [Concomitant]
     Active Substance: URSODIOL
     Route: 048
  16. PROCARDIA (UNITED STATES) [Concomitant]
     Route: 048

REACTIONS (6)
  - Pulse absent [Unknown]
  - Blood pressure immeasurable [Unknown]
  - Skin discolouration [Unknown]
  - Visual impairment [Unknown]
  - Emotional disorder [Unknown]
  - Drug hypersensitivity [Unknown]

NARRATIVE: CASE EVENT DATE: 20150112
